FAERS Safety Report 18459495 (Version 7)
Quarter: 2022Q4

REPORT INFORMATION
  Report Type: Spontaneous
  Country: US (occurrence: US)
  Receive Date: 20201103
  Receipt Date: 20221219
  Transmission Date: 20230113
  Serious: Yes (Hospitalization, Other)
  Sender: FDA-Public Use
  Company Number: US-PFIZER INC-2020425427

PATIENT
  Age: 79 Year
  Sex: Female

DRUGS (1)
  1. XELJANZ XR [Suspect]
     Active Substance: TOFACITINIB CITRATE
     Dosage: 11 MG, 1X/DAY

REACTIONS (7)
  - Bronchitis [Unknown]
  - Myocardial infarction [Unknown]
  - Pancreatectomy [Unknown]
  - Splenectomy [Unknown]
  - Malaise [Unknown]
  - Musculoskeletal disorder [Unknown]
  - Precancerous cells present [Unknown]
